FAERS Safety Report 4386822-4 (Version None)
Quarter: 2004Q2

REPORT INFORMATION
  Report Type: 
  Country: None (occurrence: None)
  Receive Date: 20040622
  Receipt Date: 20040603
  Transmission Date: 20050107
  Serious: Yes (Death, Hospitalization)
  Sender: FDA-Public Use
  Company Number: F01200401189

PATIENT
  Age: 75 Year
  Sex: Male

DRUGS (15)
  1. OXALIPLATIN - SOLUTION - 85 MG/M2 [Suspect]
     Indication: COLORECTAL CANCER
     Dosage: 85 MG/M2 Q2W INTRAVENOUS NOS
     Route: 042
     Dates: start: 20040504, end: 20040504
  2. FLUOROURACIL [Suspect]
     Dosage: 500 MG/M2 BOLUS ON D1, D8 AND D15, Q4W INTRAVENOUS NOS
     Route: 042
     Dates: start: 20040504, end: 20040504
  3. LEUCOVORIN CALCIUM [Suspect]
     Dosage: 20 MG/M2 ON D1, D8 AND D15, Q4W INTRAVENOUS NOS
     Route: 042
     Dates: start: 20040504, end: 20040504
  4. AVASTIN [Suspect]
     Dosage: 5 MG/KG OVER 30-90 MINUTES IV INFUSION ON DAY 1, 15, Q4W INTRAVENOUS NOS
     Route: 042
     Dates: start: 20040504, end: 20040504
  5. LESCOL [Concomitant]
  6. LOTREL (AMLODIPINE, BENAZEPRIL HCL) [Concomitant]
  7. KCL (POTASSIUM CHLORIDE) [Concomitant]
  8. RESTORIL [Concomitant]
  9. INSULIN [Concomitant]
  10. CLINDAMYCIN [Concomitant]
  11. COMPAZINE [Concomitant]
  12. COUMADIN [Concomitant]
  13. FLOMAX [Concomitant]
  14. GLYBURIDE [Concomitant]
  15. HYZAAR (HCTZ/LOSARTAN POTASSIUM/COZAAR COMP/LORZAAR PLUS) [Concomitant]

REACTIONS (16)
  - ABDOMINAL PAIN [None]
  - BLOOD AMYLASE DECREASED [None]
  - BLOOD CALCIUM DECREASED [None]
  - BLOOD CHLORIDE DECREASED [None]
  - BLOOD UREA INCREASED [None]
  - DIARRHOEA [None]
  - HYPERCREATININAEMIA [None]
  - HYPERGLYCAEMIA [None]
  - HYPOALBUMINAEMIA [None]
  - HYPOKALAEMIA [None]
  - HYPONATRAEMIA [None]
  - LEUKOPENIA [None]
  - NEUTROPENIA [None]
  - PCO2 DECREASED [None]
  - PROTEIN TOTAL DECREASED [None]
  - TOOTH ABSCESS [None]
